FAERS Safety Report 13695470 (Version 1)
Quarter: 2017Q2

REPORT INFORMATION
  Report Type: Report from Study
  Country: IR (occurrence: IR)
  Receive Date: 20170627
  Receipt Date: 20170627
  Transmission Date: 20170830
  Serious: Yes (Other)
  Sender: FDA-Public Use
  Company Number: IR-BAUSCH-BL-2017-019901

PATIENT
  Age: 66 Year
  Sex: Male

DRUGS (1)
  1. TETRACAINE. [Suspect]
     Active Substance: TETRACAINE
     Indication: OCULAR DISCOMFORT
     Route: 065

REACTIONS (3)
  - Prescription drug used without a prescription [Unknown]
  - Corneal oedema [Unknown]
  - Corneal epithelium defect [Unknown]
